FAERS Safety Report 4958293-8 (Version None)
Quarter: 2006Q1

REPORT INFORMATION
  Report Type: 
  Country: None (occurrence: None)
  Receive Date: 20060330
  Receipt Date: 20060322
  Transmission Date: 20060701
  Serious: Yes (Hospitalization)
  Sender: FDA-Public Use
  Company Number: US-ROCHE-441610

PATIENT
  Age: 49 Year
  Sex: Female
  Weight: 82.6 kg

DRUGS (5)
  1. BONIVA [Suspect]
     Indication: OSTEOPOROSIS
     Route: 048
     Dates: start: 20060303, end: 20060303
  2. NAPROXEN [Interacting]
     Indication: BACK PAIN
     Route: 048
     Dates: start: 20060225
  3. VALIUM [Suspect]
     Indication: VERTIGO
     Route: 048
     Dates: start: 20060315, end: 20060320
  4. PRAVACHOL [Concomitant]
     Route: 048
  5. ZESTRIL [Concomitant]
     Indication: HYPERTENSION
     Route: 048

REACTIONS (9)
  - CONSTIPATION [None]
  - CRYING [None]
  - DIARRHOEA [None]
  - DIZZINESS [None]
  - DRUG INTERACTION [None]
  - DYSPEPSIA [None]
  - VERTIGO [None]
  - VISUAL DISTURBANCE [None]
  - VOMITING [None]
